FAERS Safety Report 11735158 (Version 2)
Quarter: 2016Q1

REPORT INFORMATION
  Report Type: Report from Study
  Country: JP (occurrence: JP)
  Receive Date: 20151113
  Receipt Date: 20160121
  Transmission Date: 20160525
  Serious: Yes (Other)
  Sender: FDA-Public Use
  Company Number: JP-OTSUKA-2015_013933

PATIENT
  Age: 68 Year
  Sex: Male
  Weight: 37 kg

DRUGS (2)
  1. *CLOPIDOGREL [Suspect]
     Active Substance: CLOPIDOGREL BISULFATE
     Indication: ISCHAEMIC STROKE
     Dosage: 75 MG, DAILY DOSE
     Route: 048
     Dates: end: 20141120
  2. CILOSTAZOL. [Suspect]
     Active Substance: CILOSTAZOL
     Indication: ISCHAEMIC STROKE
     Dosage: 50 MG, BID
     Route: 048
     Dates: start: 20141029, end: 20141120

REACTIONS (2)
  - Feeling abnormal [Unknown]
  - Palpitations [Recovered/Resolved]

NARRATIVE: CASE EVENT DATE: 20141119
